FAERS Safety Report 24157588 (Version 1)
Quarter: 2024Q3

REPORT INFORMATION
  Report Type: Spontaneous
  Country: US (occurrence: US)
  Receive Date: 20240731
  Receipt Date: 20240731
  Transmission Date: 20241016
  Serious: Yes (Other)
  Sender: HIKMA
  Company Number: HIKM2406299

PATIENT
  Sex: Male

DRUGS (1)
  1. FLUTICASONE PROPIONATE AND SALMETEROL [Suspect]
     Active Substance: FLUTICASONE PROPIONATE\SALMETEROL XINAFOATE
     Indication: Cough
     Dosage: UNK UNK, 12 HOURS APART
     Route: 048
     Dates: start: 20240723

REACTIONS (4)
  - Pneumonitis [Unknown]
  - Bronchitis [Unknown]
  - Off label use [Unknown]
  - Drug ineffective [Unknown]
